FAERS Safety Report 6425294-2 (Version None)
Quarter: 2009Q4

REPORT INFORMATION
  Report Type: 
  Country: None (occurrence: None)
  Receive Date: 20091102
  Receipt Date: 20091102
  Transmission Date: 20100525
  Serious: No
  Sender: FDA-Public Use
  Company Number: None

PATIENT
  Age: 72 Year
  Sex: Male

DRUGS (1)
  1. HEPARIN [Suspect]
     Indication: ATRIAL FIBRILLATION
     Dosage: 5000 UNITS TID SQ
     Route: 058
     Dates: start: 20071126

REACTIONS (5)
  - CHROMATURIA [None]
  - INTERNATIONAL NORMALISED RATIO ABNORMAL [None]
  - PENILE HAEMORRHAGE [None]
  - SCROTAL PAIN [None]
  - SCROTAL SWELLING [None]
